FAERS Safety Report 21370696 (Version 12)
Quarter: 2025Q3

REPORT INFORMATION
  Report Type: Report from Study
  Country: EU (occurrence: EU)
  Receive Date: 20220923
  Receipt Date: 20250801
  Transmission Date: 20251021
  Serious: Yes (Hospitalization, Other)
  Sender: PFIZER
  Company Number: EU-PFM-2021-02450

PATIENT
  Age: 87 Year
  Sex: Female

DRUGS (9)
  1. ENCORAFENIB [Suspect]
     Active Substance: ENCORAFENIB
     Indication: Malignant melanoma
     Dosage: 450 MG, 1X/DAY
     Route: 048
     Dates: start: 20210201, end: 20210428
  2. BINIMETINIB [Suspect]
     Active Substance: BINIMETINIB
     Indication: Malignant melanoma
     Dosage: EVERY 12 HOURS
     Route: 048
     Dates: start: 20210201, end: 20210428
  3. PANTOPRAZOLE [Concomitant]
     Active Substance: PANTOPRAZOLE
     Indication: Prophylaxis
  4. BISOPROLOL [Concomitant]
     Active Substance: BISOPROLOL
  5. AMLODIPINE BESYLATE [Concomitant]
     Active Substance: AMLODIPINE BESYLATE
  6. CANDESARTAN [Concomitant]
     Active Substance: CANDESARTAN
  7. SIMVASTATIN [Concomitant]
     Active Substance: SIMVASTATIN
  8. INSULIN HUMAN [Concomitant]
     Active Substance: INSULIN HUMAN
     Route: 065
     Dates: start: 201909
  9. LANTUS [Concomitant]
     Active Substance: INSULIN GLARGINE
     Dates: start: 201909

REACTIONS (7)
  - Transaminases increased [Recovered/Resolved]
  - Epilepsy [Recovered/Resolved]
  - Urinary tract infection [Recovered/Resolved]
  - Vomiting [Recovered/Resolved]
  - Nausea [Unknown]
  - Diarrhoea [Recovered/Resolved]
  - Hyperthyroidism [Not Recovered/Not Resolved]

NARRATIVE: CASE EVENT DATE: 20210201
